FAERS Safety Report 24793444 (Version 1)
Quarter: 2024Q4

REPORT INFORMATION
  Report Type: Spontaneous
  Country: SE (occurrence: SE)
  Receive Date: 20241231
  Receipt Date: 20241231
  Transmission Date: 20250114
  Serious: Yes (Other)
  Sender: ALCON
  Company Number: None

PATIENT

DRUGS (1)
  1. LATANOPROST\NETARSUDIL MESYLATE [Suspect]
     Active Substance: LATANOPROST\NETARSUDIL MESYLATE
     Indication: Glaucoma
     Dosage: 1 DROP RIGHT + LEFT EVERY EVENING
     Dates: start: 20230801

REACTIONS (3)
  - Visual impairment [Not Recovered/Not Resolved]
  - Astigmatism [Not Recovered/Not Resolved]
  - Condition aggravated [Not Recovered/Not Resolved]

NARRATIVE: CASE EVENT DATE: 20230801
